FAERS Safety Report 4878119-0 (Version None)
Quarter: 2006Q1

REPORT INFORMATION
  Report Type: 
  Country: None (occurrence: None)
  Receive Date: 20060111
  Receipt Date: 20051026
  Transmission Date: 20060701
  Serious: Yes (Death)
  Sender: FDA-Public Use
  Company Number: 2005UW16201

PATIENT
  Age: 89 Year
  Sex: Female
  Weight: 45 kg

DRUGS (4)
  1. MEROPENEM [Suspect]
     Indication: PNEUMONIA
     Route: 042
     Dates: start: 20051018
  2. CAPTOPRIL [Concomitant]
     Indication: HYPERTENSION
     Route: 050
     Dates: start: 20051011
  3. ASPIRIN [Concomitant]
     Route: 050
     Dates: start: 20051011
  4. CLOPIDOGREL [Concomitant]
     Route: 050
     Dates: start: 20051011

REACTIONS (1)
  - SHOCK [None]
